FAERS Safety Report 7513178-8 (Version None)
Quarter: 2011Q2

REPORT INFORMATION
  Report Type: 
  Country: None (occurrence: None)
  Receive Date: 20110531
  Receipt Date: 20110518
  Transmission Date: 20111010
  Serious: Yes (Hospitalization)
  Sender: FDA-Public Use
  Company Number: US-MERCK-1103USA00347

PATIENT
  Age: 63 Year
  Sex: Male
  Weight: 66 kg

DRUGS (11)
  1. METOPROLOL [Concomitant]
     Route: 048
  2. METOPROLOL [Concomitant]
     Route: 048
  3. OMEPRAZOLE [Concomitant]
     Route: 048
  4. ZOCOR [Suspect]
     Route: 048
  5. ZOCOR [Suspect]
     Route: 048
  6. NITROGLYCERIN [Concomitant]
     Route: 048
  7. FUROSEMIDE [Concomitant]
     Route: 048
  8. RANOLAZINE [Suspect]
     Route: 048
  9. ISOSORBIDE MONONITRATE [Concomitant]
     Route: 048
  10. HYDRALAZINE [Concomitant]
     Route: 048
  11. CLOPIDOGREL [Concomitant]
     Route: 048

REACTIONS (2)
  - DRUG INTERACTION [None]
  - RHABDOMYOLYSIS [None]
